FAERS Safety Report 18229029 (Version 6)
Quarter: 2025Q2

REPORT INFORMATION
  Report Type: Report from Study
  Country: DK (occurrence: DK)
  Receive Date: 20200903
  Receipt Date: 20250630
  Transmission Date: 20250716
  Serious: Yes (Hospitalization)
  Sender: TAKEDA
  Company Number: DK-CELGENE-DNK-20200803720

PATIENT
  Age: 73 Year
  Sex: Female

DRUGS (17)
  1. BORTEZOMIB [Suspect]
     Active Substance: BORTEZOMIB
     Indication: Plasma cell myeloma
     Dosage: 5.2 MILLIGRAM, 1/WEEK
     Dates: start: 20200428, end: 20200509
  2. BORTEZOMIB [Suspect]
     Active Substance: BORTEZOMIB
     Dosage: 2.6 MILLIGRAM, 2/WEEK
     Dates: start: 20200428, end: 20200509
  3. BORTEZOMIB [Suspect]
     Active Substance: BORTEZOMIB
     Dosage: 5.2 MILLIGRAM, 1/WEEK
     Dates: start: 20200519, end: 20200530
  4. BORTEZOMIB [Suspect]
     Active Substance: BORTEZOMIB
     Dosage: 5.2 MILLIGRAM, 1/WEEK
     Dates: start: 20200609, end: 20200622
  5. BORTEZOMIB [Suspect]
     Active Substance: BORTEZOMIB
     Dosage: 2.6 MILLIGRAM, 1/WEEK
     Dates: start: 20200714, end: 20200728
  6. BORTEZOMIB [Suspect]
     Active Substance: BORTEZOMIB
     Dosage: 2.6 MILLIGRAM, 1/WEEK
     Dates: start: 20200805, end: 20200819
  7. DEXAMETHASONE [Suspect]
     Active Substance: DEXAMETHASONE
     Indication: Plasma cell myeloma
     Dosage: 80 MILLIGRAM, 1/WEEK
     Dates: start: 20200428, end: 20200509
  8. DEXAMETHASONE [Suspect]
     Active Substance: DEXAMETHASONE
     Dosage: 20 MILLIGRAM, 4/WEEK
     Dates: start: 20200428, end: 20200509
  9. DEXAMETHASONE [Suspect]
     Active Substance: DEXAMETHASONE
     Dosage: 80 MILLIGRAM, 1/WEEK
     Dates: start: 20200519, end: 20200530
  10. DEXAMETHASONE [Suspect]
     Active Substance: DEXAMETHASONE
     Dosage: 80 MILLIGRAM, 1/WEEK
     Dates: start: 20200609, end: 20200622
  11. DEXAMETHASONE [Suspect]
     Active Substance: DEXAMETHASONE
     Dosage: 40 MILLIGRAM, 1/WEEK
     Dates: start: 20200714, end: 20200728
  12. DEXAMETHASONE [Suspect]
     Active Substance: DEXAMETHASONE
     Dosage: 20 MILLIGRAM, 4/WEEK
     Dates: start: 20200805, end: 20200819
  13. REVLIMID [Suspect]
     Active Substance: LENALIDOMIDE
     Indication: Plasma cell myeloma
     Dosage: 10 MILLIGRAM, QD
     Dates: start: 20200428, end: 20200509
  14. REVLIMID [Suspect]
     Active Substance: LENALIDOMIDE
     Dosage: 15 MILLIGRAM, QD
     Dates: start: 20200519, end: 20200530
  15. REVLIMID [Suspect]
     Active Substance: LENALIDOMIDE
     Dosage: 15 MILLIGRAM, QD
     Dates: start: 20200609, end: 20200622
  16. REVLIMID [Suspect]
     Active Substance: LENALIDOMIDE
     Dosage: 10 MILLIGRAM, QD
     Dates: start: 20200714, end: 20200728
  17. REVLIMID [Suspect]
     Active Substance: LENALIDOMIDE
     Dosage: 10 MILLIGRAM, QD
     Dates: start: 20200805, end: 20200819

REACTIONS (4)
  - Hypervolaemia [Recovered/Resolved]
  - Fatigue [Recovered/Resolved with Sequelae]
  - Pruritus [Recovered/Resolved]
  - Nausea [Recovered/Resolved]

NARRATIVE: CASE EVENT DATE: 20200605
